FAERS Safety Report 4843883-3 (Version None)
Quarter: 2005Q4

REPORT INFORMATION
  Report Type: 
  Country: None (occurrence: None)
  Receive Date: 20051130
  Receipt Date: 20051130
  Transmission Date: 20060501
  Serious: Yes (Other)
  Sender: FDA-Public Use
  Company Number: None

PATIENT
  Age: 41 Year
  Sex: Female
  Weight: 65.7716 kg

DRUGS (1)
  1. LYRICA [Suspect]
     Indication: NEURALGIA
     Dosage: 2   DAILY   PO
     Route: 048
     Dates: start: 20051024, end: 20051125

REACTIONS (7)
  - DRUG DOSE OMISSION [None]
  - ECONOMIC PROBLEM [None]
  - HALLUCINATION [None]
  - HEADACHE [None]
  - INFLUENZA [None]
  - MALAISE [None]
  - NAUSEA [None]
